FAERS Safety Report 6440592-4 (Version None)
Quarter: 2009Q4

REPORT INFORMATION
  Report Type: 
  Country: None (occurrence: None)
  Receive Date: 20091113
  Receipt Date: 20091105
  Transmission Date: 20100525
  Serious: Yes (Hospitalization)
  Sender: FDA-Public Use
  Company Number: JP-MERCK-0910USA03778

PATIENT
  Age: 69 Year
  Sex: Male

DRUGS (13)
  1. PEPCID RPD [Suspect]
     Indication: GASTRITIS
     Route: 048
     Dates: start: 20090930, end: 20091023
  2. ISCOTIN [Suspect]
     Indication: TUBERCULOSIS
     Route: 048
     Dates: start: 20090918, end: 20091020
  3. RIFADIN [Suspect]
     Indication: TUBERCULOSIS
     Route: 048
     Dates: start: 20090918, end: 20091020
  4. ETHAMBUTOL HYDROCHLORIDE [Suspect]
     Indication: TUBERCULOSIS
     Route: 048
     Dates: start: 20090918, end: 20091020
  5. PYRAZINAMIDE [Suspect]
     Indication: TUBERCULOSIS
     Route: 048
     Dates: start: 20090918, end: 20091020
  6. CALTAN [Concomitant]
     Route: 065
  7. THYRADIN [Concomitant]
     Route: 065
  8. PENLES [Concomitant]
     Route: 065
  9. GLAKAY [Concomitant]
     Route: 065
  10. PROMAC [Concomitant]
     Route: 065
  11. METHYCOBAL [Concomitant]
     Route: 065
  12. CINAL [Concomitant]
     Route: 065
  13. OLMETEC [Concomitant]
     Route: 065
     Dates: start: 20090917

REACTIONS (1)
  - TOXIC SKIN ERUPTION [None]
